FAERS Safety Report 4807734-5 (Version None)
Quarter: 2005Q4

REPORT INFORMATION
  Report Type: 
  Country: None (occurrence: None)
  Receive Date: 20051019
  Receipt Date: 20051005
  Transmission Date: 20060501
  Serious: Yes (Hospitalization, Disabling)
  Sender: FDA-Public Use
  Company Number: 430016M05DEU

PATIENT
  Age: 47 Year
  Sex: Male

DRUGS (4)
  1. MITOXANTRONE [Suspect]
     Indication: PROGRESSIVE MULTIPLE SCLEROSIS
     Dosage: 12 MG/M2
     Dates: start: 20050301, end: 20050301
  2. MITOXANTRONE [Suspect]
     Indication: PROGRESSIVE MULTIPLE SCLEROSIS
     Dosage: 12 MG/M2
     Dates: start: 20050610, end: 20050610
  3. MITOXANTRONE [Suspect]
     Indication: PROGRESSIVE MULTIPLE SCLEROSIS
     Dosage: 12 MG/M2
     Dates: start: 20041101
  4. CORTISONE (CORTISONE /00014601/) [Suspect]
     Dosage: INTRAVENOUS
     Route: 042

REACTIONS (1)
  - OSTEONECROSIS [None]
